FAERS Safety Report 7943196-7 (Version None)
Quarter: 2011Q4

REPORT INFORMATION
  Report Type: 
  Country: None (occurrence: None)
  Receive Date: 20111128
  Receipt Date: 20111118
  Transmission Date: 20120403
  Serious: Yes (Other)
  Sender: FDA-Public Use
  Company Number: PHHY2011IE102158

PATIENT
  Sex: Male

DRUGS (2)
  1. ANGIOTENSIN II ANTAGONISTS [Concomitant]
  2. EXFORGE [Suspect]

REACTIONS (1)
  - CARDIAC DISORDER [None]
